FAERS Safety Report 15997095 (Version 4)
Quarter: 2025Q2

REPORT INFORMATION
  Report Type: Spontaneous
  Country: FR (occurrence: FR)
  Receive Date: 20190222
  Receipt Date: 20250409
  Transmission Date: 20250717
  Serious: Yes (Other)
  Sender: NOVARTIS
  Company Number: PHHY2019FR041496

PATIENT
  Age: 77 Year
  Sex: Female
  Weight: 50 kg

DRUGS (8)
  1. NEORAL [Suspect]
     Active Substance: CYCLOSPORINE
     Indication: Bone marrow transplant
     Dosage: 140 MG, BID
     Route: 042
     Dates: start: 20190111
  2. NICARDIPINE HYDROCHLORIDE [Suspect]
     Active Substance: NICARDIPINE HYDROCHLORIDE
     Indication: Product used for unknown indication
     Route: 065
  3. AMOXICILLIN [Suspect]
     Active Substance: AMOXICILLIN
     Indication: Infection
     Dosage: 500 MG, BID
     Route: 065
     Dates: start: 20190110
  4. PRAVASTATIN SODIUM [Suspect]
     Active Substance: PRAVASTATIN SODIUM
     Indication: Hypocholesterolaemia
     Dosage: 40 MG, QD
     Route: 065
  5. CELLCEPT [Suspect]
     Active Substance: MYCOPHENOLATE MOFETIL
     Indication: Bone marrow transplant
     Route: 048
     Dates: start: 201901
  6. TERALITHE [Suspect]
     Active Substance: LITHIUM CARBONATE
     Indication: Depression
     Dosage: 2 DF, QD
     Route: 048
     Dates: start: 2017, end: 20190215
  7. ETHYL LOFLAZEPATE [Suspect]
     Active Substance: ETHYL LOFLAZEPATE
     Indication: Depression
     Dosage: 3 DF, QD (2 DF IN THE MORNING 1 DF IN THE EVENING)
     Route: 048
     Dates: start: 2017, end: 20190215
  8. VALACYCLOVIR HYDROCHLORIDE [Suspect]
     Active Substance: VALACYCLOVIR HYDROCHLORIDE
     Indication: Viral infection
     Dosage: 500 MG, BID
     Route: 048
     Dates: start: 201803

REACTIONS (13)
  - Choking [Recovered/Resolved]
  - Decreased appetite [Recovered/Resolved]
  - Incontinence [Recovered/Resolved]
  - Depression [Not Recovered/Not Resolved]
  - Alexithymia [Not Recovered/Not Resolved]
  - Movement disorder [Recovered/Resolved]
  - Balance disorder [Not Recovered/Not Resolved]
  - Aphasia [Recovered/Resolved]
  - Renal failure [Not Recovered/Not Resolved]
  - Confusional state [Recovered/Resolved]
  - Feeding disorder [Unknown]
  - Memory impairment [Unknown]
  - Fatigue [Not Recovered/Not Resolved]

NARRATIVE: CASE EVENT DATE: 20190101
